FAERS Safety Report 6659626-7 (Version None)
Quarter: 2010Q1

REPORT INFORMATION
  Report Type: 
  Country: None (occurrence: None)
  Receive Date: 20100330
  Receipt Date: 20100318
  Transmission Date: 20100710
  Serious: Yes (Hospitalization, Other)
  Sender: FDA-Public Use
  Company Number: US-PFIZER INC-2010036026

PATIENT
  Sex: Male
  Weight: 78 kg

DRUGS (2)
  1. DILANTIN [Suspect]
     Indication: CONVULSION
     Dosage: 100 MG, 4X/DAY
     Route: 048
     Dates: start: 20030101
  2. DILANTIN [Suspect]
     Dosage: 100 MG, 2X/DAY
     Route: 048

REACTIONS (4)
  - CONVULSION [None]
  - PAIN [None]
  - PAIN IN EXTREMITY [None]
  - TREMOR [None]
